FAERS Safety Report 7498293-X (Version None)
Quarter: 2011Q2

REPORT INFORMATION
  Report Type: 
  Country: None (occurrence: None)
  Receive Date: 20110524
  Receipt Date: 20101015
  Transmission Date: 20111010
  Serious: Yes (Other)
  Sender: FDA-Public Use
  Company Number: US-BAYER-201016105NA

PATIENT
  Age: 23 Year
  Sex: Female
  Weight: 99.773 kg

DRUGS (4)
  1. YAZ [Suspect]
     Indication: PRODUCT USED FOR UNKNOWN INDICATION
     Dosage: UNK
     Route: 048
  2. ORTHO EVRA [Concomitant]
     Indication: CONTRACEPTION
     Dosage: UNK
     Route: 062
     Dates: start: 20050601
  3. NSAID'S [Concomitant]
  4. YASMIN [Suspect]
     Indication: PRODUCT USED FOR UNKNOWN INDICATION
     Dosage: UNK
     Route: 048
     Dates: start: 20040101, end: 20050101

REACTIONS (2)
  - CHOLECYSTECTOMY [None]
  - CHOLELITHIASIS [None]
